FAERS Safety Report 9271868 (Version 2)
Quarter: 2013Q2

REPORT INFORMATION
  Report Type: Spontaneous
  Country: US (occurrence: US)
  Receive Date: 20130506
  Receipt Date: 20130619
  Transmission Date: 20140414
  Serious: Yes (Hospitalization, Other)
  Sender: FDA-Public Use
  Company Number: US-BRISTOL-MYERS SQUIBB COMPANY-18826891

PATIENT
  Age: 75 Year
  Sex: Female
  Weight: 77.1 kg

DRUGS (5)
  1. ONGLYZA TABS 5 MG [Suspect]
     Dosage: THERAPY ONGOING.
     Dates: start: 2012
  2. IMMUNOGLOBULIN [Suspect]
     Route: 042
  3. CELEBREX [Concomitant]
  4. LISINOPRIL [Concomitant]
  5. PROTONIX [Concomitant]

REACTIONS (4)
  - Myelitis transverse [Unknown]
  - Pruritus [Unknown]
  - Erythema [Unknown]
  - Pharyngeal oedema [Unknown]
